FAERS Safety Report 6812060-9 (Version None)
Quarter: 2010Q2

REPORT INFORMATION
  Report Type: 
  Country: None (occurrence: None)
  Receive Date: 20100628
  Receipt Date: 20100615
  Transmission Date: 20101027
  Serious: Yes (Hospitalization)
  Sender: FDA-Public Use
  Company Number: 2010AL003595

PATIENT
  Age: 75 Year
  Sex: Female

DRUGS (9)
  1. RAMIPRIL [Suspect]
     Indication: MYOCARDIAL INFARCTION
     Dosage: 2.5 MG; PO
     Route: 048
     Dates: start: 20090818, end: 20090819
  2. SIMVASTATIN [Concomitant]
  3. ACETAMINOPHEN [Concomitant]
  4. ACETYLSALICYLIC ACID [Concomitant]
  5. ... [Concomitant]
  6. CLOPIDOGREL [Concomitant]
  7. TIOTROPIUM [Concomitant]
  8. BENDROFLUMETHIAZIDE [Concomitant]
  9. PREV MEDS [Concomitant]

REACTIONS (2)
  - CONFUSIONAL STATE [None]
  - DELIRIUM [None]
